FAERS Safety Report 7540834-8 (Version None)
Quarter: 2011Q2

REPORT INFORMATION
  Report Type: 
  Country: None (occurrence: None)
  Receive Date: 20110610
  Receipt Date: 20110602
  Transmission Date: 20111010
  Serious: Yes (Hospitalization)
  Sender: FDA-Public Use
  Company Number: CA-ROCHE-781024

PATIENT
  Sex: Female
  Weight: 108 kg

DRUGS (7)
  1. DOCETAXEL [Suspect]
     Dosage: TOTAL DOSE:  128 MG. LAST DOSE PRIOR TO SAE 09 SEP 2010.
     Route: 042
     Dates: start: 20100527
  2. CARBOPLATIN [Suspect]
     Dosage: DOSAGE FORM VIALS
     Route: 042
     Dates: start: 20100527
  3. BEVACIZUMAB [Suspect]
     Dosage: DOASE FORM: VIALS
     Route: 042
     Dates: start: 20100527, end: 20110204
  4. TRASTUZUMAB [Suspect]
     Dosage: TOTAL DOSE:  595 MG, DOSAGE FORM: VIALS. LAST DOSE PRIOR SAE 08 APR 2011.
     Route: 042
     Dates: start: 20100327, end: 20110429
  5. FENTANYL-100 [Concomitant]
     Dates: start: 20110511
  6. CARBOPLATIN [Suspect]
     Dosage: DOSE: 5 AUC ( TOTAL DOSE ADMINISTRED 1070 MG)
     Route: 042
     Dates: start: 20100909
  7. BEVACIZUMAB [Suspect]
     Dosage: TOTAL DOSE ADMINISTRED 1490 MG.
     Route: 042
     Dates: start: 20110204

REACTIONS (2)
  - AORTIC VALVE INCOMPETENCE [None]
  - EJECTION FRACTION DECREASED [None]
